FAERS Safety Report 7581547-6 (Version None)
Quarter: 2011Q2

REPORT INFORMATION
  Report Type: 
  Country: None (occurrence: None)
  Receive Date: 20110629
  Receipt Date: 20110624
  Transmission Date: 20111010
  Serious: Yes (Other)
  Sender: FDA-Public Use
  Company Number: PHHO2011FR01511

PATIENT
  Sex: Female

DRUGS (4)
  1. GILENYA [Suspect]
     Dosage: 0.5 MG, QD
     Route: 048
     Dates: start: 20100301
  2. GILENYA [Suspect]
     Indication: MULTIPLE SCLEROSIS
     Dosage: DOSE BLINDED
     Route: 048
     Dates: start: 20081218, end: 20100228
  3. MIRENA [Concomitant]
     Indication: CONTRACEPTION
  4. CLONAZEPAM [Concomitant]
     Indication: PARAESTHESIA

REACTIONS (1)
  - BASAL CELL CARCINOMA [None]
